FAERS Safety Report 17997020 (Version 2)
Quarter: 2020Q3

REPORT INFORMATION
  Report Type: Spontaneous
  Country: FR (occurrence: FR)
  Receive Date: 20200708
  Receipt Date: 20200711
  Transmission Date: 20201103
  Serious: Yes (Other)
  Sender: FDA-Public Use
  Company Number: NVSC2020FR186605

PATIENT
  Age: 50 Year
  Sex: Female
  Weight: 60 kg

DRUGS (10)
  1. FLUOROURACILE [Suspect]
     Active Substance: FLUOROURACIL
     Indication: COLORECTAL CANCER
     Dosage: 1800 MCI
     Route: 042
     Dates: start: 20200427, end: 20200429
  2. PREDNISOLONE. [Suspect]
     Active Substance: PREDNISOLONE
     Indication: PROPHYLAXIS OF NAUSEA AND VOMITING
     Dosage: 325 MG
     Route: 048
     Dates: start: 20200427, end: 20200427
  3. ONDANSETRON [Suspect]
     Active Substance: ONDANSETRON
     Indication: PROPHYLAXIS OF NAUSEA AND VOMITING
     Dosage: 325 MG
     Route: 048
     Dates: start: 20200427, end: 20200427
  4. APREPITANT. [Suspect]
     Active Substance: APREPITANT
     Indication: PROPHYLAXIS OF NAUSEA AND VOMITING
     Dosage: 325 MG, QD
     Route: 048
     Dates: start: 20200427, end: 20200427
  5. LEDERFOLINE [Suspect]
     Active Substance: LEUCOVORIN CALCIUM
     Indication: ANAEMIA PROPHYLAXIS
     Dosage: 325 MG, QD
     Route: 042
     Dates: start: 20200427, end: 20200427
  6. FLUOROURACILE ACCORD [Suspect]
     Active Substance: FLUOROURACIL
     Indication: COLORECTAL CANCER
     Dosage: 400 MG
     Route: 042
     Dates: start: 20200427, end: 20200427
  7. RANITIDINE. [Suspect]
     Active Substance: RANITIDINE
     Indication: PROPHYLAXIS OF NAUSEA AND VOMITING
     Dosage: 325 MG
     Route: 048
     Dates: start: 20200427, end: 20200427
  8. ELOXATIN [Suspect]
     Active Substance: OXALIPLATIN
     Indication: COLORECTAL CANCER
     Dosage: 135 MG
     Route: 042
     Dates: start: 20200427, end: 20200427
  9. DEXCHLORPHENIRAMINE MALEATE. [Suspect]
     Active Substance: DEXCHLORPHENIRAMINE MALEATE
     Indication: PROPHYLAXIS OF NAUSEA AND VOMITING
     Dosage: 325 MG, QD
     Route: 048
     Dates: start: 20200427, end: 20200427
  10. DESLORATADINE. [Suspect]
     Active Substance: DESLORATADINE
     Indication: PROPHYLAXIS OF NAUSEA AND VOMITING
     Dosage: 325 MG, QD
     Route: 048
     Dates: start: 20200427, end: 20200427

REACTIONS (1)
  - Arteriospasm coronary [Recovered/Resolved]

NARRATIVE: CASE EVENT DATE: 20200429
